FAERS Safety Report 8220401-3 (Version None)
Quarter: 2012Q1

REPORT INFORMATION
  Report Type: 
  Country: None (occurrence: None)
  Receive Date: 20120320
  Receipt Date: 20120313
  Transmission Date: 20120608
  Serious: Yes (Hospitalization)
  Sender: FDA-Public Use
  Company Number: JP-SANOFI-AVENTIS-2010SA062177

PATIENT
  Age: 63 Year
  Sex: Male
  Weight: 85 kg

DRUGS (10)
  1. PLAVIX [Suspect]
     Indication: ANGINA UNSTABLE
     Route: 048
     Dates: start: 20100804
  2. HEPARIN [Concomitant]
     Indication: ANGINA UNSTABLE
     Route: 042
     Dates: start: 20100804, end: 20100804
  3. BISOPROLOL FUMARATE [Concomitant]
     Route: 048
     Dates: start: 20090101
  4. MESTINON [Concomitant]
     Indication: MYASTHENIA GRAVIS
     Route: 048
  5. CRESTOR [Concomitant]
     Route: 048
     Dates: start: 20090101
  6. ACTONEL [Concomitant]
     Indication: PROPHYLAXIS
     Route: 048
  7. LENDORMIN [Concomitant]
     Route: 048
  8. MAGNESIUM OXIDE [Concomitant]
     Indication: CONSTIPATION
     Route: 048
  9. LANSOPRAZOLE [Concomitant]
     Indication: PROPHYLAXIS
     Route: 048
  10. ASPIRIN [Concomitant]
     Indication: ANGINA UNSTABLE
     Route: 048
     Dates: start: 20090301

REACTIONS (1)
  - CHOLANGITIS [None]
